FAERS Safety Report 8864427 (Version 1)
Quarter: 2012Q4

REPORT INFORMATION
  Report Type: 
  Country: US (occurrence: US)
  Receive Date: 20121024
  Receipt Date: 20121024
  Transmission Date: 20130627
  Serious: Yes (Other)
  Sender: FDA-Public Use
  Company Number: US-AMGEN-USASP2011067127

PATIENT
  Age: 54 Year
  Sex: Male

DRUGS (5)
  1. ENBREL [Suspect]
     Indication: PRODUCT USED FOR UNKNOWN INDICATION
     Dosage: 50 mg, qwk
     Route: 058
  2. DIOVAN [Concomitant]
     Dosage: 160 mg, UNK
  3. SIMVASTATIN [Concomitant]
     Dosage: 40 mg, UNK
  4. PRIMIDONE [Concomitant]
     Dosage: 50 mg, UNK
  5. KLOR-CON M20 [Concomitant]
     Dosage: 20 mEq, UNK

REACTIONS (1)
  - Convulsion [Unknown]
